FAERS Safety Report 13059513 (Version 4)
Quarter: 2017Q1

REPORT INFORMATION
  Report Type: Report from Study
  Country: DE (occurrence: DE)
  Receive Date: 20161223
  Receipt Date: 20170125
  Transmission Date: 20170428
  Serious: Yes (Hospitalization)
  Sender: FDA-Public Use
  Company Number: DE-IPSEN BIOPHARMACEUTICALS, INC.-2016-11326

PATIENT
  Age: 64 Year
  Sex: Female

DRUGS (8)
  1. SYREA [Concomitant]
     Active Substance: HYDROXYUREA
  2. ATORVASTATIN [Concomitant]
     Active Substance: ATORVASTATIN
  3. TILIDIN [Concomitant]
     Active Substance: NALOXONE HYDROCHLORIDE\TILIDINE HYDROCHLORIDE
  4. CITALOPRAM [Concomitant]
     Active Substance: CITALOPRAM HYDROBROMIDE
  5. ACETYLSALICYLIC ACID [Concomitant]
     Active Substance: ASPIRIN
  6. DYSPORT [Suspect]
     Active Substance: ABOBOTULINUMTOXINA
     Indication: MUSCLE SPASTICITY
     Dosage: 1000 IU
     Route: 030
     Dates: start: 20160914, end: 20160914
  7. MIRTAZAPINE. [Concomitant]
     Active Substance: MIRTAZAPINE
  8. CLEXANE [Concomitant]
     Active Substance: ENOXAPARIN SODIUM

REACTIONS (4)
  - Fall [Recovering/Resolving]
  - Presyncope [Recovering/Resolving]
  - Laceration [Recovering/Resolving]
  - Vomiting [Recovering/Resolving]

NARRATIVE: CASE EVENT DATE: 20161130
